FAERS Safety Report 8006177-3 (Version None)
Quarter: 2011Q4

REPORT INFORMATION
  Report Type: 
  Country: None (occurrence: None)
  Receive Date: 20111226
  Receipt Date: 20111221
  Transmission Date: 20120403
  Serious: No
  Sender: FDA-Public Use
  Company Number: PHEH2011US012349

PATIENT
  Sex: Female
  Weight: 110.66 kg

DRUGS (10)
  1. TASIGNA [Suspect]
     Indication: NEOPLASM MALIGNANT
     Dosage: 300 MG, BID
     Dates: start: 20111018
  2. VALTREX [Concomitant]
  3. VANCOMYCIN HCL [Concomitant]
  4. LANTUS [Concomitant]
  5. BENTYL [Concomitant]
  6. EFFEXOR [Concomitant]
  7. SYNTHROID [Concomitant]
  8. DIOVAN [Concomitant]
  9. METFORMIN HCL [Concomitant]
  10. PROTONIX [Concomitant]

REACTIONS (1)
  - LABELLED DRUG-FOOD INTERACTION MEDICATION ERROR [None]
